FAERS Safety Report 5719664-5 (Version None)
Quarter: 2008Q2

REPORT INFORMATION
  Report Type: 
  Country: None (occurrence: None)
  Receive Date: 20080425
  Receipt Date: 20080425
  Transmission Date: 20081010
  Serious: Yes (Hospitalization)
  Sender: FDA-Public Use
  Company Number: None

PATIENT
  Age: 82 Year
  Sex: Male

DRUGS (2)
  1. GLYBURIDE [Suspect]
     Indication: DIABETES MELLITUS
     Dosage: 5 MG BID PO
     Route: 048
     Dates: start: 20080324, end: 20080328
  2. INSULIN [Suspect]
     Dates: start: 20080103, end: 20080328

REACTIONS (2)
  - DYSARTHRIA [None]
  - HYPOGLYCAEMIA [None]
